FAERS Safety Report 20408749 (Version 8)
Quarter: 2022Q4

REPORT INFORMATION
  Report Type: Report from Study
  Country: US (occurrence: US)
  Receive Date: 20220201
  Receipt Date: 20221027
  Transmission Date: 20230113
  Serious: No
  Sender: FDA-Public Use
  Company Number: US-NOVARTISTESTPH-NVSC2022US021402

PATIENT
  Age: 67 Year
  Sex: Female

DRUGS (2)
  1. COSENTYX [Suspect]
     Active Substance: SECUKINUMAB
     Indication: Psoriasis
     Dosage: UNK, QW (Q WEEK FOR FIVE WEEKS)
     Route: 058
     Dates: start: 20211206
  2. COSENTYX [Suspect]
     Active Substance: SECUKINUMAB
     Dosage: UNK, QMO( Q FOUR WEEKS)
     Route: 058

REACTIONS (4)
  - Dry skin [Unknown]
  - Skin tightness [Unknown]
  - Weight decreased [Unknown]
  - Hunger [Unknown]

NARRATIVE: CASE EVENT DATE: 20220729
